FAERS Safety Report 9753231 (Version 1)
Quarter: 2013Q4

REPORT INFORMATION
  Report Type: Spontaneous
  Country: US (occurrence: US)
  Receive Date: 20131213
  Receipt Date: 20131213
  Transmission Date: 20140711
  Serious: No
  Sender: FDA-Public Use
  Company Number: US-GILEAD-2010-0027631

PATIENT
  Sex: Female

DRUGS (10)
  1. LETAIRIS [Suspect]
     Indication: PULMONARY ARTERIAL HYPERTENSION
     Route: 048
     Dates: start: 20091021
  2. IRON [Concomitant]
  3. LEVOTHYROXINE [Concomitant]
  4. TAPAZOLE [Concomitant]
  5. TRAZODONE [Concomitant]
  6. LASIX [Concomitant]
  7. PRINIVIL [Concomitant]
  8. ASPIRIN [Concomitant]
  9. POTASSIUM CHLORIDE [Concomitant]
  10. SPIRIVA [Concomitant]

REACTIONS (1)
  - Haemorrhage [Unknown]
